FAERS Safety Report 4874831-8 (Version None)
Quarter: 2006Q1

REPORT INFORMATION
  Report Type: 
  Country: None (occurrence: None)
  Receive Date: 20060104
  Receipt Date: 20051227
  Transmission Date: 20060701
  Serious: Yes (Other)
  Sender: FDA-Public Use
  Company Number: 2005168164

PATIENT
  Age: 17 Year
  Sex: Female
  Weight: 59 kg

DRUGS (5)
  1. EPLERENONE (EPLERENONE) [Suspect]
     Indication: HYPERTENSION
     Dosage: 25 MG (25 MG, ONCE DAILY), ORAL
     Route: 048
     Dates: start: 20050427, end: 20051224
  2. PREDNISOLONE [Concomitant]
  3. ATENOLOL [Concomitant]
  4. NIFEDIPINE [Concomitant]
  5. CYCLOPHOSPHAMIDE [Concomitant]

REACTIONS (1)
  - BLOOD CORTISOL DECREASED [None]
